FAERS Safety Report 23456854 (Version 1)
Quarter: 2024Q1

REPORT INFORMATION
  Report Type: Spontaneous
  Country: MY (occurrence: MY)
  Receive Date: 20240130
  Receipt Date: 20240130
  Transmission Date: 20240409
  Serious: Yes (Other)
  Sender: FDA-Public Use
  Company Number: MY-SANDOZ-SDZ2024MY006621

PATIENT
  Sex: Male

DRUGS (4)
  1. FUROSEMIDE [Suspect]
     Active Substance: FUROSEMIDE
     Indication: C3 glomerulopathy
     Dosage: 40 MG, BD
     Route: 065
     Dates: start: 20220201
  2. MYCOPHENOLATE MOFETIL [Suspect]
     Active Substance: MYCOPHENOLATE MOFETIL
     Indication: C3 glomerulopathy
     Dosage: 750 MG, BD
     Route: 065
     Dates: start: 20230601, end: 20231231
  3. PERINDOPRIL [Suspect]
     Active Substance: PERINDOPRIL
     Indication: C3 glomerulopathy
     Dosage: 8 MG, QD
     Route: 065
     Dates: start: 20220201
  4. PREDNISOLONE [Suspect]
     Active Substance: PREDNISOLONE
     Indication: C3 glomerulopathy
     Dosage: 1 MG/KG, QD
     Route: 065
     Dates: start: 20220524, end: 20221103

REACTIONS (3)
  - Renal impairment [Unknown]
  - Glomerular filtration rate abnormal [Unknown]
  - Drug ineffective [Unknown]
